FAERS Safety Report 15115136 (Version 1)
Quarter: 2018Q2

REPORT INFORMATION
  Report Type: Spontaneous
  Country: US (occurrence: US)
  Receive Date: 20180612
  Receipt Date: 20180612
  Transmission Date: 20180711
  Serious: Yes (Other)
  Sender: FDA-Public Use
  Company Number: None

PATIENT
  Age: 19 Year
  Sex: Male
  Weight: 70 kg

DRUGS (2)
  1. HALOPERIDOL. [Suspect]
     Active Substance: HALOPERIDOL
     Indication: PSYCHOTIC DISORDER
     Route: 048
  2. HYDROXYZINE 50MG CAPSULE [Concomitant]

REACTIONS (5)
  - Lip swelling [None]
  - Extrapyramidal disorder [None]
  - Trismus [None]
  - Joint stiffness [None]
  - Drooling [None]

NARRATIVE: CASE EVENT DATE: 20180412
